FAERS Safety Report 9073207 (Version 2)
Quarter: 2013Q2

REPORT INFORMATION
  Report Type: Spontaneous
  Country: CA (occurrence: CA)
  Receive Date: 20130129
  Receipt Date: 20130604
  Transmission Date: 20140414
  Serious: Yes (Death)
  Sender: FDA-Public Use
  Company Number: CA-ABBOTT-13P-028-1041969-00

PATIENT
  Age: 64 Year
  Sex: Male

DRUGS (9)
  1. BIAXIN XL [Suspect]
     Indication: BRONCHITIS
     Route: 048
  2. BIAXIN XL [Interacting]
     Indication: SINUSITIS
  3. BENYLIN [Interacting]
     Indication: PRODUCT USED FOR UNKNOWN INDICATION
  4. NYQUIL [Interacting]
     Indication: PRODUCT USED FOR UNKNOWN INDICATION
     Route: 048
  5. PROZAC [Interacting]
     Indication: BIPOLAR DISORDER
     Route: 048
  6. RESTORIL [Concomitant]
     Indication: PRODUCT USED FOR UNKNOWN INDICATION
  7. WELLBUTRIN XL [Concomitant]
     Indication: PRODUCT USED FOR UNKNOWN INDICATION
  8. ZYPREXA [Concomitant]
     Indication: PRODUCT USED FOR UNKNOWN INDICATION
  9. SERAX [Concomitant]
     Indication: PRODUCT USED FOR UNKNOWN INDICATION

REACTIONS (7)
  - Accidental poisoning [Fatal]
  - Acute pulmonary oedema [Fatal]
  - Antidepressant drug level increased [Fatal]
  - Cardiac failure [Fatal]
  - Drug interaction [Fatal]
  - Serotonin syndrome [Fatal]
  - Toxicity to various agents [Fatal]
